FAERS Safety Report 5013546-2 (Version None)
Quarter: 2006Q2

REPORT INFORMATION
  Report Type: 
  Country: None (occurrence: None)
  Receive Date: 20060530
  Receipt Date: 20060522
  Transmission Date: 20061013
  Serious: Yes (Hospitalization)
  Sender: FDA-Public Use
  Company Number: US-BRISTOL-MYERS SQUIBB COMPANY-13384680

PATIENT
  Age: 59 Year
  Sex: Male

DRUGS (3)
  1. ORENCIA [Suspect]
     Indication: RHEUMATOID ARTHRITIS
     Route: 042
     Dates: start: 20051108
  2. METHOTREXATE [Concomitant]
     Dates: start: 20010101
  3. CELEBREX [Concomitant]
     Dates: start: 20020313

REACTIONS (1)
  - ARTHRITIS INFECTIVE [None]
